FAERS Safety Report 8535766-2 (Version None)
Quarter: 2012Q2

REPORT INFORMATION
  Report Type: 
  Country: None (occurrence: None)
  Receive Date: 20120412
  Receipt Date: 20090526
  Transmission Date: 20120825
  Serious: Yes (Hospitalization, Other)
  Sender: FDA-Public Use
  Company Number: PHEH2009US05310

PATIENT
  Sex: Female
  Weight: 78 kg

DRUGS (10)
  1. ANTIHYPERTENSIVES (NO INGREDIENTS/SUBSTANCES) [Concomitant]
  2. PREMARIN [Suspect]
     Indication: MENOPAUSE
     Dates: start: 19950101, end: 19960101
  3. ANTICOAGULANTS (ANGICOAGULANTS) [Concomitant]
  4. PREMPRO [Suspect]
     Indication: MENOPAUSE
     Dates: start: 19970101, end: 20050101
  5. PREMPRO [Suspect]
     Indication: MENOPAUSE
     Dates: start: 20000101, end: 20000101
  6. PROVERA [Suspect]
     Indication: MENOPAUSE
     Dates: start: 19950101, end: 19970101
  7. OGEN [Suspect]
     Indication: MENOPAUSE
     Dates: start: 19970101, end: 19970101
  8. DIURETICS (NO INGREDIENTS/SUBSTANCES) [Concomitant]
  9. ESTRADIOL AND NORETHINDRONE ACETATE [Suspect]
     Indication: MENOPAUSE
     Dosage: 0.05/0.14 DAY, TRANSDERMAL
     Route: 062
     Dates: start: 20010101, end: 20040101
  10. ESTRATEST [Suspect]
     Indication: MENOPAUSE
     Dates: start: 19970101, end: 19980101

REACTIONS (15)
  - DEFORMITY [None]
  - RADIOTHERAPY [None]
  - ANXIETY [None]
  - SURGERY [None]
  - MASTECTOMY [None]
  - BREAST CANCER [None]
  - CHEMOTHERAPY [None]
  - BREAST PAIN [None]
  - GENERAL PHYSICAL HEALTH DETERIORATION [None]
  - PAIN [None]
  - DEPRESSION [None]
  - INJURY [None]
  - BREAST OPERATION [None]
  - BIOPSY BREAST [None]
  - LYMPHADENECTOMY [None]
